FAERS Safety Report 5194847-4 (Version None)
Quarter: 2006Q4

REPORT INFORMATION
  Report Type: 
  Country: None (occurrence: None)
  Receive Date: 20061227
  Receipt Date: 20061215
  Transmission Date: 20070319
  Serious: Yes (Other)
  Sender: FDA-Public Use
  Company Number: SPV1-2006-02113

PATIENT
  Age: 7 Year
  Sex: Male
  Weight: 25.9 kg

DRUGS (1)
  1. DAYTRANA [Suspect]
     Indication: ATTENTION DEFICIT/HYPERACTIVITY DISORDER
     Dosage: 10MG, TRANSDERMAL
     Route: 062
     Dates: start: 20060801, end: 20061211

REACTIONS (1)
  - ERYTHEMA INFECTIOSUM [None]
